FAERS Safety Report 6302913-2 (Version None)
Quarter: 2009Q3

REPORT INFORMATION
  Report Type: 
  Country: None (occurrence: None)
  Receive Date: 20090803
  Receipt Date: 20090414
  Transmission Date: 20100115
  Serious: Yes (Hospitalization)
  Sender: FDA-Public Use
  Company Number: 191629USA

PATIENT
  Sex: Female

DRUGS (5)
  1. CIPROFLOXACIN HYDROCHLORIDE [Suspect]
     Indication: GASTROINTESTINAL PAIN
     Dosage: 1000 MG (500 MG, 2 IN 1 D) , ORAL
     Route: 048
  2. FORTICAL [Suspect]
  3. LISINOPRIL [Concomitant]
  4. BIMATOPROST [Concomitant]
  5. ESOMEPRAZOLE MAGNESIUM [Concomitant]

REACTIONS (8)
  - ABDOMINAL DISCOMFORT [None]
  - DIARRHOEA [None]
  - DISCOMFORT [None]
  - DIZZINESS [None]
  - FAECES DISCOLOURED [None]
  - HEADACHE [None]
  - NECK PAIN [None]
  - PAINFUL DEFAECATION [None]
